FAERS Safety Report 18628207 (Version 40)
Quarter: 2024Q2

REPORT INFORMATION
  Report Type: Report from Study
  Country: IE (occurrence: IE)
  Receive Date: 20201217
  Receipt Date: 20240626
  Transmission Date: 20240715
  Serious: Yes (Other)
  Sender: FDA-Public Use
  Company Number: IE-SHIRE-IE202027135

PATIENT
  Age: 14 Year
  Sex: Male

DRUGS (40)
  1. IDURSULFASE [Suspect]
     Active Substance: IDURSULFASE
     Indication: Mucopolysaccharidosis II
     Dosage: 36 MILLIGRAM, 1/WEEK
     Route: 042
     Dates: start: 20120119
  2. IDURSULFASE [Suspect]
     Active Substance: IDURSULFASE
     Dosage: 36 MILLIGRAM, 1/WEEK
     Route: 042
     Dates: start: 20150427
  3. IDURSULFASE [Suspect]
     Active Substance: IDURSULFASE
     Dosage: 36 MILLIGRAM, 1/WEEK
     Route: 042
     Dates: start: 20150427
  4. IDURSULFASE [Suspect]
     Active Substance: IDURSULFASE
     Dosage: 36 MILLIGRAM, 1/WEEK
     Route: 042
  5. IDURSULFASE [Suspect]
     Active Substance: IDURSULFASE
     Dosage: 36 MILLIGRAM, 1/WEEK
     Route: 042
     Dates: start: 20211207
  6. IDURSULFASE [Suspect]
     Active Substance: IDURSULFASE
     Dosage: 36 MILLIGRAM, 1/WEEK
     Route: 042
     Dates: start: 20220817
  7. IDURSULFASE [Suspect]
     Active Substance: IDURSULFASE
     Dosage: 36 MILLIGRAM, 1/WEEK
     Route: 042
     Dates: start: 20230720
  8. IDURSULFASE [Suspect]
     Active Substance: IDURSULFASE
     Dosage: UNK
     Route: 050
  9. IDURSULFASE [Suspect]
     Active Substance: IDURSULFASE
     Dosage: 36 MILLIGRAM, 1/WEEK
     Route: 042
  10. IDURSULFASE [Suspect]
     Active Substance: IDURSULFASE
     Dosage: 30 MILLIGRAM, 1/WEEK
     Route: 042
  11. IDURSULFASE [Suspect]
     Active Substance: IDURSULFASE
     Dosage: UNK UNK, Q2WEEKS
     Route: 042
  12. IDURSULFASE [Suspect]
     Active Substance: IDURSULFASE
     Dosage: UNK UNK, Q2WEEKS
     Route: 042
  13. IDURSULFASE [Suspect]
     Active Substance: IDURSULFASE
     Dosage: UNK UNK, Q2WEEKS
     Route: 042
  14. IDURSULFASE [Suspect]
     Active Substance: IDURSULFASE
     Dosage: UNK UNK, Q2WEEKS
     Route: 042
  15. IDURSULFASE [Suspect]
     Active Substance: IDURSULFASE
     Dosage: UNK UNK, Q2WEEKS
     Route: 042
  16. IDURSULFASE [Suspect]
     Active Substance: IDURSULFASE
     Dosage: 36 MILLIGRAM, 1/WEEK
     Route: 042
  17. IDURSULFASE [Suspect]
     Active Substance: IDURSULFASE
     Dosage: 36 MILLIGRAM, 1/WEEK
     Route: 042
  18. IDURSULFASE [Suspect]
     Active Substance: IDURSULFASE
     Dosage: 36 MILLIGRAM, 1/WEEK
     Route: 042
  19. IDURSULFASE [Suspect]
     Active Substance: IDURSULFASE
     Dosage: 36 MILLIGRAM, 1/WEEK
     Route: 042
  20. IDURSULFASE [Suspect]
     Active Substance: IDURSULFASE
     Dosage: UNK
     Route: 042
     Dates: start: 20200812
  21. IDURSULFASE [Suspect]
     Active Substance: IDURSULFASE
     Dosage: UNK
     Route: 042
     Dates: start: 20200819
  22. IDURSULFASE [Suspect]
     Active Substance: IDURSULFASE
     Dosage: UNK UNK, Q2WEEKS
     Route: 042
     Dates: start: 20200923
  23. IDURSULFASE [Suspect]
     Active Substance: IDURSULFASE
     Dosage: UNK UNK, Q2WEEKS
     Route: 042
  24. IDURSULFASE [Suspect]
     Active Substance: IDURSULFASE
     Dosage: 36 MILLIGRAM, 1/WEEK
     Route: 042
  25. IDURSULFASE [Suspect]
     Active Substance: IDURSULFASE
     Dosage: 36 MILLIGRAM, 1/WEEK
     Route: 042
  26. IDURSULFASE [Suspect]
     Active Substance: IDURSULFASE
     Dosage: 36 MILLIGRAM, 1/WEEK
     Route: 042
     Dates: start: 20240131
  27. IDURSULFASE [Suspect]
     Active Substance: IDURSULFASE
     Dosage: 36 MILLIGRAM, 1/WEEK
     Route: 042
     Dates: start: 20240612
  28. IDURSULFASE [Suspect]
     Active Substance: IDURSULFASE
     Dosage: 36 MILLIGRAM, 1/WEEK
     Route: 042
     Dates: start: 20240619
  29. PFIZER-BIONTECH COVID-19 VACCINE [Suspect]
     Active Substance: TOZINAMERAN
     Indication: COVID-19 immunisation
     Dosage: UNK
     Route: 065
  30. DIAZEPAM [Concomitant]
     Active Substance: DIAZEPAM
     Dosage: 2.5 MILLIGRAM, QD
     Route: 050
  31. CETIRIZINE HYDROCHLORIDE [Concomitant]
     Active Substance: CETIRIZINE HYDROCHLORIDE
     Dosage: 5 MILLIGRAM, QD
     Route: 050
  32. CETIRIZINE HYDROCHLORIDE [Concomitant]
     Active Substance: CETIRIZINE HYDROCHLORIDE
     Dosage: 5 MILLIGRAM
     Route: 050
  33. PREDNISOLONE [Concomitant]
     Active Substance: PREDNISOLONE
     Dosage: 2 MILLIGRAM
     Route: 050
  34. RANITIDINE [Concomitant]
     Active Substance: RANITIDINE
     Dosage: 10 MILLILITER, 1/WEEK
     Route: 050
  35. RANITIDINE [Concomitant]
     Active Substance: RANITIDINE
     Dosage: 5 MILLILITER
     Route: 050
  36. ACETAMINOPHEN [Concomitant]
     Active Substance: ACETAMINOPHEN
     Dosage: 1.5 MILLILITER
     Route: 050
  37. ACETAMINOPHEN [Concomitant]
     Active Substance: ACETAMINOPHEN
     Dosage: 15 MILLILITER
     Route: 065
  38. ACETAMINOPHEN [Concomitant]
     Active Substance: ACETAMINOPHEN
     Dosage: 15 MILLILITER
     Route: 050
  39. CETIRIZINE HYDROCHLORIDE [Concomitant]
     Active Substance: CETIRIZINE HYDROCHLORIDE
     Dosage: 5 MILLILITER
     Route: 050
  40. VOLTAROL [Concomitant]
     Active Substance: DICLOFENAC SODIUM
     Dosage: 25 MILLIGRAM, BID
     Route: 050

REACTIONS (24)
  - Choking [Unknown]
  - Anaphylactic reaction [Unknown]
  - Rash papular [Unknown]
  - Infusion site pain [Recovered/Resolved]
  - Nasopharyngitis [Recovered/Resolved]
  - Poor venous access [Recovered/Resolved]
  - Dyspepsia [Unknown]
  - Arthralgia [Not Recovered/Not Resolved]
  - Infusion site extravasation [Recovered/Resolved]
  - Eosinophilic oesophagitis [Unknown]
  - Dehydration [Unknown]
  - Respiratory symptom [Unknown]
  - Malaise [Recovering/Resolving]
  - Influenza [Recovering/Resolving]
  - Complication associated with device [Not Recovered/Not Resolved]
  - Device infusion issue [Recovered/Resolved]
  - Ear infection [Recovering/Resolving]
  - Eczema [Not Recovered/Not Resolved]
  - Vomiting [Unknown]
  - Diarrhoea [Unknown]
  - Rash [Recovered/Resolved]
  - Urticaria [Unknown]
  - Inappropriate schedule of product administration [Recovering/Resolving]
  - Product dose omission issue [Not Recovered/Not Resolved]

NARRATIVE: CASE EVENT DATE: 20201209
